FAERS Safety Report 4704422-0 (Version None)
Quarter: 2005Q2

REPORT INFORMATION
  Report Type: 
  Country: None (occurrence: None)
  Receive Date: 20050628
  Receipt Date: 20050610
  Transmission Date: 20051028
  Serious: Yes (Death)
  Sender: FDA-Public Use
  Company Number: 214996

PATIENT
  Age: 82 Year
  Sex: Female

DRUGS (11)
  1. MABTHERA (RITUXIMAB) CONC FOR SOLUTION FOR INFUSION [Suspect]
     Dates: start: 20050201, end: 20050201
  2. CYCLOPHOSPHAMIDE [Suspect]
     Dates: start: 20050201, end: 20050201
  3. FLUDAR (FLUDARABINE PHOSPHATE) [Suspect]
     Dosage: 50 MG, ORAL
     Route: 048
     Dates: start: 20050204, end: 20050208
  4. PLENDIL [Concomitant]
  5. DIFLUCAN [Concomitant]
  6. OMEPRAZOLE [Concomitant]
  7. EUSAPRIM (SULFAMETHOXAZOLE, TRIMETHROPRIM) [Concomitant]
  8. AZACTAM [Concomitant]
  9. VANCOMYCIN HCL [Concomitant]
  10. GEAVIR (ACYCLOVIR0 [Concomitant]
  11. TAVANIC (LEVOFLOXACIN) [Concomitant]

REACTIONS (3)
  - APLASTIC ANAEMIA [None]
  - BONE MARROW DEPRESSION [None]
  - SEPTIC SHOCK [None]
